FAERS Safety Report 21895138 (Version 1)
Quarter: 2023Q1

REPORT INFORMATION
  Report Type: Report from Study
  Country: TH (occurrence: TH)
  Receive Date: 20230122
  Receipt Date: 20230122
  Transmission Date: 20230417
  Serious: Yes (Hospitalization, Other)
  Sender: FDA-Public Use
  Company Number: TH-SUN PHARMACEUTICAL INDUSTRIES LTD-2023R1-373700

PATIENT
  Age: 66 Year
  Sex: Female

DRUGS (2)
  1. ALPRAZOLAM [Suspect]
     Active Substance: ALPRAZOLAM
     Indication: Product used for unknown indication
     Dosage: UNK
     Route: 065
  2. LORAZEPAM [Suspect]
     Active Substance: LORAZEPAM
     Indication: Product used for unknown indication
     Dosage: UNK
     Route: 065

REACTIONS (5)
  - Intentional overdose [Unknown]
  - Toxicity to various agents [Unknown]
  - Suicide attempt [Unknown]
  - Respiratory failure [Unknown]
  - Laryngeal injury [Unknown]
